FAERS Safety Report 5805726-0 (Version None)
Quarter: 2008Q3

REPORT INFORMATION
  Report Type: 
  Country: None (occurrence: None)
  Receive Date: 20080708
  Receipt Date: 20080708
  Transmission Date: 20090109
  Serious: Yes (Hospitalization)
  Sender: FDA-Public Use
  Company Number: None

PATIENT
  Age: 48 Year
  Sex: Female
  Weight: 50.8029 kg

DRUGS (1)
  1. ACTONEL [Suspect]
     Indication: OSTEOPOROSIS
     Dosage: 75 MG TWICE A MONTH PO
     Route: 048
     Dates: start: 20080702, end: 20080703

REACTIONS (7)
  - ABDOMINAL DISTENSION [None]
  - BONE PAIN [None]
  - CHEST PAIN [None]
  - DYSPEPSIA [None]
  - FLATULENCE [None]
  - MUSCULOSKELETAL PAIN [None]
  - NECK PAIN [None]
